FAERS Safety Report 16129041 (Version 4)
Quarter: 2019Q3

REPORT INFORMATION
  Report Type: Spontaneous
  Country: JP (occurrence: JP)
  Receive Date: 20190328
  Receipt Date: 20190814
  Transmission Date: 20191004
  Serious: Yes (Hospitalization, Other)
  Sender: FDA-Public Use
  Company Number: JP-JNJFOC-20190329619

PATIENT
  Age: 12 Year
  Sex: Male
  Weight: 43 kg

DRUGS (2)
  1. CONCERTA [Suspect]
     Active Substance: METHYLPHENIDATE HYDROCHLORIDE
     Route: 048
  2. CONCERTA [Suspect]
     Active Substance: METHYLPHENIDATE HYDROCHLORIDE
     Indication: ATTENTION DEFICIT/HYPERACTIVITY DISORDER
     Dosage: 216 MG (5 MG/KG)
     Route: 048

REACTIONS (9)
  - Heart rate increased [Recovered/Resolved]
  - Logorrhoea [Recovering/Resolving]
  - Electrocardiogram QT prolonged [Recovered/Resolved]
  - Overdose [Unknown]
  - Psychomotor hyperactivity [Recovering/Resolving]
  - Toxicity to various agents [Unknown]
  - Agitation [Recovering/Resolving]
  - Blood pressure increased [Recovered/Resolved]
  - Sinus tachycardia [Recovering/Resolving]
